FAERS Safety Report 6528058-4 (Version None)
Quarter: 2009Q4

REPORT INFORMATION
  Report Type: 
  Country: None (occurrence: None)
  Receive Date: 20091222
  Receipt Date: 20090916
  Transmission Date: 20100525
  Serious: No
  Sender: FDA-Public Use
  Company Number: ALL1-2009-02743

PATIENT
  Age: 11 Year
  Sex: Male
  Weight: 59 kg

DRUGS (2)
  1. VYVANSE [Suspect]
     Indication: ATTENTION DEFICIT/HYPERACTIVITY DISORDER
     Dosage: 30 MG, OTHER ON SCHOOL DAYS ONLY, ORAL
     Route: 048
     Dates: start: 20090901
  2. TRILEPTAL [Concomitant]

REACTIONS (3)
  - FEAR [None]
  - INITIAL INSOMNIA [None]
  - IRRITABILITY [None]
